FAERS Safety Report 7419373-0 (Version None)
Quarter: 2011Q2

REPORT INFORMATION
  Report Type: 
  Country: None (occurrence: None)
  Receive Date: 20110415
  Receipt Date: 20110413
  Transmission Date: 20111010
  Serious: Yes (Other)
  Sender: FDA-Public Use
  Company Number: ES-ABBOTT-10P-144-0653379-00

PATIENT
  Age: 73 Year
  Sex: Female

DRUGS (7)
  1. SINTROM [Concomitant]
     Indication: ATRIAL FIBRILLATION
  2. HIDROFEROL [Concomitant]
     Indication: OSTEOPOROSIS
  3. FUROSEMIDE [Concomitant]
     Indication: MITRAL VALVE INCOMPETENCE
  4. IDEOS [Concomitant]
     Indication: OSTEOPOROSIS
  5. HUMIRA [Suspect]
     Indication: RHEUMATOID ARTHRITIS
     Dates: start: 20050331
  6. PREOCTACT [Concomitant]
     Indication: OSTEOPOROSIS
  7. MOTIVAN [Concomitant]
     Indication: DEPRESSION

REACTIONS (2)
  - DEVICE DISLOCATION [None]
  - MEDICAL DEVICE PAIN [None]
